FAERS Safety Report 8139696-X (Version None)
Quarter: 2012Q1

REPORT INFORMATION
  Report Type: 
  Country: None (occurrence: None)
  Receive Date: 20120215
  Receipt Date: 20120210
  Transmission Date: 20120608
  Serious: Yes (Other)
  Sender: FDA-Public Use
  Company Number: PHEH2012US002519

PATIENT
  Sex: Male
  Weight: 91.156 kg

DRUGS (9)
  1. TRIAMTERENE AND HYDROCHLOROTHIAZID [Concomitant]
     Dosage: 50 MG, UNK
     Route: 048
  2. PHOSPHORUS [Concomitant]
  3. POTASSIUM CHLORIDE [Concomitant]
  4. IRON [Concomitant]
  5. ANTIHYPERTENSIVES [Concomitant]
  6. BACLOFEN [Concomitant]
     Dosage: 10 MG, BID
     Route: 048
     Dates: start: 20100324
  7. TRAMADOL HCL [Concomitant]
     Dosage: 50 MG, UNK
     Route: 048
  8. TEMAZEPAM [Concomitant]
     Dosage: 30 MG, QHS
     Route: 048
  9. GILENYA [Suspect]
     Indication: MULTIPLE SCLEROSIS
     Dosage: 0.5 MG, QD
     Route: 048
     Dates: start: 20120111

REACTIONS (7)
  - BLADDER DISORDER [None]
  - HEADACHE [None]
  - PAIN IN EXTREMITY [None]
  - HYPOAESTHESIA [None]
  - MUSCULAR WEAKNESS [None]
  - COUGH [None]
  - VISION BLURRED [None]
